FAERS Safety Report 11585771 (Version 1)
Quarter: 2015Q4

REPORT INFORMATION
  Report Type: Spontaneous
  Country: CH (occurrence: DE)
  Receive Date: 20151001
  Receipt Date: 20151001
  Transmission Date: 20160304
  Serious: Yes (Other)
  Sender: FDA-Public Use
  Company Number: CH-LPDUSPRD-20150767

PATIENT
  Age: 44 Year
  Sex: Female
  Weight: 46 kg

DRUGS (1)
  1. FERINJECT [Suspect]
     Active Substance: FERRIC CARBOXYMALTOSE
     Dosage: 500MG/250ML NACL OVER 30 MIN.
     Route: 042
     Dates: start: 20150826, end: 20150826

REACTIONS (4)
  - Nausea [Unknown]
  - Paraesthesia [Unknown]
  - Circulatory collapse [Unknown]
  - Product preparation error [Unknown]

NARRATIVE: CASE EVENT DATE: 20150826
